FAERS Safety Report 9250542 (Version 1)
Quarter: 2013Q1

REPORT INFORMATION
  Report Type: Spontaneous
  Country: US (occurrence: None)
  Receive Date: 20130305
  Receipt Date: 20130305
  Transmission Date: 20140127
  Serious: Yes (Disabling)
  Sender: FDA-Public Use
  Company Number: 163-21880-12062510

PATIENT
  Age: 58 Year
  Sex: Female

DRUGS (3)
  1. REVLIMID [Suspect]
     Indication: PLASMA CELL MYELOMA
     Dosage: 25 MG, 14 IN 28 D, PO
     Route: 048
     Dates: start: 20120207, end: 2012
  2. REVLIMID [Suspect]
     Indication: PRODUCT USED FOR UNKNOWN INDICATION
     Dosage: 25 MG, 14 IN 28 D, PO
     Route: 048
     Dates: start: 20120207, end: 2012
  3. VELCADE [Suspect]

REACTIONS (3)
  - Neuropathy peripheral [None]
  - Pain in extremity [None]
  - Oedema peripheral [None]
